FAERS Safety Report 9366221 (Version 2)
Quarter: 2013Q3

REPORT INFORMATION
  Report Type: Spontaneous
  Country: IT (occurrence: IT)
  Receive Date: 20130625
  Receipt Date: 20130703
  Transmission Date: 20140515
  Serious: Yes (Death, Hospitalization)
  Sender: FDA-Public Use
  Company Number: IT-JNJFOC-20130613928

PATIENT
  Age: 5 Year
  Sex: Male
  Weight: 17 kg

DRUGS (6)
  1. TOPAMAX [Suspect]
     Indication: EPILEPSY
     Route: 048
  2. FRISIUM [Suspect]
     Indication: EPILEPSY
     Route: 048
  3. GARDENAL [Suspect]
     Indication: EPILEPSY
     Route: 048
  4. CARBAMAZEPINE [Suspect]
     Indication: EPILEPSY
     Route: 065
  5. CLONAZEPAM [Suspect]
     Indication: EPILEPSY
     Route: 065
  6. SAIZEN [Concomitant]
     Indication: GROWTH HORMONE DEFICIENCY
     Route: 058
     Dates: start: 20101021, end: 20130422

REACTIONS (6)
  - Pneumonia aspiration [Fatal]
  - Acute respiratory distress syndrome [Fatal]
  - Drug ineffective [Fatal]
  - Convulsion [Fatal]
  - Incorrect route of drug administration [Unknown]
  - Overdose [Unknown]
